FAERS Safety Report 14501886 (Version 6)
Quarter: 2019Q3

REPORT INFORMATION
  Report Type: Report from Study
  Country: None (occurrence: US)
  Receive Date: 20180207
  Receipt Date: 20190815
  Transmission Date: 20191004
  Serious: Yes (Other)
  Sender: FDA-Public Use
  Company Number: US-ABBVIE-18K-163-2244076-00

PATIENT
  Age: 47 Year
  Sex: Female

DRUGS (1)
  1. HUMIRA [Suspect]
     Active Substance: ADALIMUMAB
     Indication: PSORIASIS
     Route: 058

REACTIONS (11)
  - Foot deformity [Not Recovered/Not Resolved]
  - Uterine spasm [Recovered/Resolved]
  - Sinusitis [Recovering/Resolving]
  - Uterine polyp [Recovered/Resolved]
  - Post procedural complication [Unknown]
  - Uterine haemorrhage [Recovered/Resolved]
  - Blood loss anaemia [Recovered/Resolved]
  - Psoriasis [Not Recovered/Not Resolved]
  - Sinusitis [Recovered/Resolved]
  - Cardiac disorder [Not Recovered/Not Resolved]
  - Chronic obstructive pulmonary disease [Unknown]

NARRATIVE: CASE EVENT DATE: 201803
